FAERS Safety Report 24555066 (Version 1)
Quarter: 2024Q4

REPORT INFORMATION
  Report Type: Spontaneous
  Country: US (occurrence: US)
  Receive Date: 20241028
  Receipt Date: 20241028
  Transmission Date: 20250114
  Serious: Yes (Hospitalization)
  Sender: BAYER HEALTHCARE LLC
  Company Number: US-BAYER-2024A146803

PATIENT
  Sex: Male

DRUGS (2)
  1. ALKA-SELTZER ORIGINAL FLAVOR [Suspect]
     Active Substance: ASPIRIN
     Indication: Gastrointestinal disorder
     Dosage: UNK
     Route: 048
  2. ALKA-SELTZER ORIGINAL FLAVOR [Suspect]
     Active Substance: ASPIRIN
     Indication: Abdominal pain upper

REACTIONS (3)
  - Illness [Unknown]
  - Drug ineffective [Unknown]
  - Adverse event [Unknown]
